FAERS Safety Report 4776630-4 (Version None)
Quarter: 2005Q3

REPORT INFORMATION
  Report Type: 
  Country: None (occurrence: None)
  Receive Date: 20050921
  Receipt Date: 20050914
  Transmission Date: 20060218
  Serious: Yes (Life-Threatening, Hospitalization, Disabling, Other)
  Sender: FDA-Public Use
  Company Number: 200511887BWH

PATIENT
  Age: 39 Year
  Sex: Female
  Weight: 73.0291 kg

DRUGS (2)
  1. AVELOX [Suspect]
     Indication: BRONCHITIS CHRONIC
     Dosage: 400 MG, ONCE, ORAL
     Route: 048
     Dates: start: 20050906
  2. CELEBREX [Concomitant]

REACTIONS (12)
  - ANAPHYLACTIC REACTION [None]
  - APHASIA [None]
  - BRAIN OEDEMA [None]
  - CEREBROVASCULAR ACCIDENT [None]
  - CONFUSIONAL STATE [None]
  - DISORIENTATION [None]
  - HYPOTENSION [None]
  - INCOHERENT [None]
  - PRURITUS [None]
  - PRURITUS GENERALISED [None]
  - SELF-MEDICATION [None]
  - WHEEZING [None]
